FAERS Safety Report 16876426 (Version 4)
Quarter: 2019Q4

REPORT INFORMATION
  Report Type: Spontaneous
  Country: US (occurrence: US)
  Receive Date: 20191002
  Receipt Date: 20191120
  Transmission Date: 20200122
  Serious: Yes (Death, Other)
  Sender: FDA-Public Use
  Company Number: US-KARYOPHARM-2019KPT000441

PATIENT

DRUGS (4)
  1. ZOFRAN [Concomitant]
     Active Substance: ONDANSETRON HYDROCHLORIDE
     Indication: NAUSEA
  2. XPOVIO [Suspect]
     Active Substance: SELINEXOR
     Indication: PLASMA CELL MYELOMA
     Dosage: 80 MG, 2X/WEEK
     Route: 048
     Dates: start: 20190812
  3. XPOVIO [Suspect]
     Active Substance: SELINEXOR
     Indication: BRAIN NEOPLASM
  4. XPOVIO [Suspect]
     Active Substance: SELINEXOR
     Indication: SPINAL CORD NEOPLASM

REACTIONS (8)
  - Fatigue [Not Recovered/Not Resolved]
  - Wrong schedule [Unknown]
  - Plasma cell myeloma [Fatal]
  - Thrombocytopenia [Unknown]
  - Nausea [Not Recovered/Not Resolved]
  - Anaemia [Unknown]
  - Seizure [Unknown]
  - Leukopenia [Unknown]

NARRATIVE: CASE EVENT DATE: 20190820
